FAERS Safety Report 9462705 (Version 3)
Quarter: 2014Q1

REPORT INFORMATION
  Report Type: Spontaneous
  Country: US (occurrence: US)
  Receive Date: 20130816
  Receipt Date: 20140110
  Transmission Date: 20141002
  Serious: Yes (Hospitalization, Other)
  Sender: FDA-Public Use
  Company Number: US-PFIZER INC-2013235802

PATIENT
  Age: 64 Year
  Sex: Male
  Weight: 122 kg

DRUGS (7)
  1. TIKOSYN [Suspect]
     Indication: HEART RATE ABNORMAL
     Dosage: 250 UG, 2X/DAY
     Dates: start: 20130806
  2. TIKOSYN [Suspect]
     Indication: ARRHYTHMIA SUPRAVENTRICULAR
  3. NEXIUM [Concomitant]
     Indication: ABDOMINAL DISCOMFORT
     Dosage: UNK
  4. BABY ASPIRIN [Concomitant]
     Dosage: 81 MG, DAILY
  5. COUMADINE [Concomitant]
     Indication: ANTICOAGULANT THERAPY
     Dosage: UNK
     Dates: start: 201307
  6. ZOCOR [Concomitant]
     Dosage: UNK
  7. POTASSIUM [Concomitant]
     Dosage: UNK

REACTIONS (4)
  - Dyspnoea [Unknown]
  - Cardiac disorder [Unknown]
  - Pulse abnormal [Unknown]
  - Renal disorder [Unknown]
